FAERS Safety Report 4689223-4 (Version None)
Quarter: 2005Q2

REPORT INFORMATION
  Report Type: 
  Country: None (occurrence: None)
  Receive Date: 20050608
  Receipt Date: 20050309
  Transmission Date: 20051028
  Serious: No
  Sender: FDA-Public Use
  Company Number: 2005-BP-03761BP

PATIENT
  Sex: Male

DRUGS (6)
  1. SPIRIVA [Suspect]
     Indication: CHRONIC OBSTRUCTIVE PULMONARY DISEASE
     Dosage: 18 MCG (18 MCG, QD), IH
     Route: 055
     Dates: start: 20050308
  2. SPIRIVA [Suspect]
     Indication: PNEUMONIA
     Dosage: 18 MCG (18 MCG, QD), IH
     Route: 055
     Dates: start: 20050308
  3. ADVAIR DISKUS 100/50 [Concomitant]
  4. AMBIEN [Concomitant]
  5. ALBUTEROL [Concomitant]
  6. PREDNISONE [Concomitant]

REACTIONS (2)
  - APHASIA [None]
  - CONFUSIONAL STATE [None]
